FAERS Safety Report 7235711-6 (Version None)
Quarter: 2011Q1

REPORT INFORMATION
  Report Type: 
  Country: None (occurrence: None)
  Receive Date: 20110120
  Receipt Date: 20110117
  Transmission Date: 20110831
  Serious: Yes (Death, Hospitalization)
  Sender: FDA-Public Use
  Company Number: PHHY2011NL03581

PATIENT
  Sex: Male

DRUGS (2)
  1. ZOMETA [Suspect]
     Indication: PROSTATE CANCER
     Dosage: 4 MG/5 ML
     Route: 042
     Dates: start: 20080215, end: 20101206
  2. SODIUM CHLORIDE [Concomitant]

REACTIONS (1)
  - PNEUMONIA [None]
